FAERS Safety Report 8983661 (Version 3)
Quarter: 2013Q1

REPORT INFORMATION
  Report Type: Spontaneous
  Country: JP (occurrence: JP)
  Receive Date: 20121224
  Receipt Date: 20130318
  Transmission Date: 20140127
  Serious: Yes (Death, Life-Threatening, Other)
  Sender: FDA-Public Use
  Company Number: JP-AMGEN-JPNSP2012082035

PATIENT
  Age: 81 Year
  Sex: Male
  Weight: 63.3 kg

DRUGS (9)
  1. ENBREL [Suspect]
     Indication: RHEUMATOID ARTHRITIS
     Dosage: 25 MG, 2X/WEEK
     Route: 058
     Dates: start: 200505, end: 200505
  2. ENBREL [Suspect]
     Dosage: 25 MG, WEEKLY
     Route: 058
     Dates: start: 200506, end: 201108
  3. ENBREL [Suspect]
     Dosage: 50 MG, WEEKLY
     Route: 058
     Dates: start: 201109
  4. BENET [Concomitant]
     Indication: OSTEOPOROSIS
     Dosage: 17.5 MG, 1X/DAY
     Route: 048
  5. SENNOSIDE                          /00571901/ [Concomitant]
     Indication: CONSTIPATION
     Dosage: 12 MG, 1X/DAY
     Route: 048
  6. ALOSENN                            /00476901/ [Concomitant]
     Indication: CONSTIPATION
     Dosage: 0.5 MG, 1X/DAY
     Route: 048
  7. KREMEZIN [Concomitant]
     Indication: RENAL FAILURE
     Dosage: 2 G, 2X/DAY
     Route: 048
  8. PREDONINE                          /00016201/ [Concomitant]
     Indication: RHEUMATOID ARTHRITIS
     Dosage: 5 MG, 1X/DAY
     Route: 048
  9. URINORM [Concomitant]
     Indication: HYPERURICAEMIA
     Dosage: 50 MG, 1X/DAY
     Route: 048

REACTIONS (7)
  - Hepatitis fulminant [Fatal]
  - Putamen haemorrhage [Fatal]
  - Cardio-respiratory arrest [Recovering/Resolving]
  - Glossoptosis [Recovering/Resolving]
  - Intraventricular haemorrhage [Unknown]
  - Coma hepatic [Recovering/Resolving]
  - Staphylococcal sepsis [Unknown]
